FAERS Safety Report 8712006 (Version 4)
Quarter: 2012Q4

REPORT INFORMATION
  Report Type: Spontaneous
  Country: JP (occurrence: None)
  Receive Date: 20120723
  Receipt Date: 20120831
  Transmission Date: 20130627
  Serious: Yes (Hospitalization, Other)
  Sender: FDA-Public Use
  Company Number: ABR_00563_2012

PATIENT
  Age: 30 Year
  Sex: Female

DRUGS (7)
  1. ERYTHROMYCIN [Suspect]
     Indication: PRODUCT USED FOR UNKNOWN INDICATION
     Dosage: [also noted as 400 mg]
     Route: 048
     Dates: start: 20120220, end: 20120227
  2. RITODRINE HYDROCHLORIDE [Concomitant]
  3. CEFAZOLIN [Concomitant]
  4. BETAMETHASONE SODIUM PHOSPHATE [Concomitant]
  5. FERRIC OXIDE, SACCHARATED [Concomitant]
  6. CARBAZOCHROME SODIUM SULFONATE [Concomitant]
  7. TRANEXAMIC ACID [Concomitant]

REACTIONS (11)
  - Postpartum sepsis [None]
  - Escherichia infection [None]
  - Caesarean section [None]
  - Premature rupture of membranes [None]
  - Amniotic cavity infection [None]
  - Tachycardia [None]
  - Incision site complication [None]
  - Wound dehiscence [None]
  - Peritonitis [None]
  - Suture rupture [None]
  - Maternal exposure during pregnancy [None]
